FAERS Safety Report 7033383-7 (Version None)
Quarter: 2010Q4

REPORT INFORMATION
  Report Type: 
  Country: None (occurrence: None)
  Receive Date: 20101005
  Receipt Date: 20100921
  Transmission Date: 20110411
  Serious: Yes (Other)
  Sender: FDA-Public Use
  Company Number: AMAG201000364

PATIENT
  Age: 59 Year
  Sex: Male
  Weight: 63.5 kg

DRUGS (6)
  1. FERAHEME [Suspect]
     Indication: IRON DEFICIENCY ANAEMIA
     Dosage: 510 MG, SINGLE, INTRAVENOUS
     Route: 042
     Dates: start: 20100909, end: 20100909
  2. VITAMIN D [Concomitant]
  3. BACTRIM DS [Concomitant]
  4. IMURAN [Concomitant]
  5. NEPHROCAPS CAPSULE [Concomitant]
  6. PREDNISONE (PREDNISONE ACETATE), 5 MG [Concomitant]

REACTIONS (7)
  - APNOEA [None]
  - BLOOD PRESSURE INCREASED [None]
  - CYTOKINE RELEASE SYNDROME [None]
  - DIZZINESS [None]
  - ERYTHEMA [None]
  - HYPERHIDROSIS [None]
  - SYNCOPE [None]
